FAERS Safety Report 7139466-5 (Version None)
Quarter: 2010Q4

REPORT INFORMATION
  Report Type: 
  Country: None (occurrence: None)
  Receive Date: 20101206
  Receipt Date: 20101129
  Transmission Date: 20110411
  Serious: Yes (Other)
  Sender: FDA-Public Use
  Company Number: JP-PFIZER INC-2010144042

PATIENT
  Age: 67 Year
  Sex: Male
  Weight: 58.6 kg

DRUGS (3)
  1. AZITHROMYCIN [Suspect]
     Indication: NASOPHARYNGITIS
     Dosage: 500 MG, 1X/DAY
     Route: 048
     Dates: start: 20101008, end: 20101010
  2. ASPIRIN [Concomitant]
     Indication: THROMBOSIS PROPHYLAXIS
     Dosage: 100 MG, 1X/DAY
     Route: 048
     Dates: start: 20070401
  3. ZYLORIC ^GLAXO WELLCOME^ [Concomitant]
     Indication: BLOOD URIC ACID
     Dosage: 100 MG, 1X/DAY
     Route: 048
     Dates: start: 20070401

REACTIONS (1)
  - PURPURA [None]
